FAERS Safety Report 6759228-8 (Version None)
Quarter: 2010Q2

REPORT INFORMATION
  Report Type: 
  Country: None (occurrence: None)
  Receive Date: 20100607
  Receipt Date: 20100527
  Transmission Date: 20101027
  Serious: Yes (Other)
  Sender: FDA-Public Use
  Company Number: US-PFIZER INC-2007006563

PATIENT
  Sex: Male

DRUGS (4)
  1. CARDURA [Suspect]
     Indication: BLOOD PRESSURE
     Dosage: 4 MG, UNK
  2. CARDURA [Suspect]
     Dosage: 8 MG, UNK
  3. DOXAZOSIN MESYLATE [Suspect]
  4. DIOVAN [Suspect]

REACTIONS (5)
  - ALOPECIA [None]
  - BLOOD PRESSURE INCREASED [None]
  - FATIGUE [None]
  - HEADACHE [None]
  - PROSTATE CANCER [None]
